FAERS Safety Report 19265578 (Version 1)
Quarter: 2021Q2

REPORT INFORMATION
  Report Type: Spontaneous
  Country: FR (occurrence: FR)
  Receive Date: 20210517
  Receipt Date: 20210517
  Transmission Date: 20210717
  Serious: Yes (Hospitalization)
  Sender: FDA-Public Use
  Company Number: FR-ACCORD-225183

PATIENT
  Age: 69 Year
  Sex: Female
  Weight: 55 kg

DRUGS (5)
  1. FLUOROURACIL ACCORD [Suspect]
     Active Substance: FLUOROURACIL
     Indication: PANCREATIC CARCINOMA METASTATIC
     Dosage: 50 MG / ML, SOLUTION FOR INFUSION
     Route: 041
     Dates: start: 20210216, end: 20210216
  2. RAMIPRIL. [Suspect]
     Active Substance: RAMIPRIL
     Indication: HYPERTENSION
     Route: 048
     Dates: start: 20210217, end: 20210223
  3. IRINOTECAN ACCORD [Suspect]
     Active Substance: IRINOTECAN
     Indication: PANCREATIC CARCINOMA METASTATIC
     Dosage: 20 MG / ML, CONCENTRATE FOR SOLUTION FOR INFUSION
     Route: 041
     Dates: start: 20210216, end: 20210216
  4. LARGACTIL [Suspect]
     Active Substance: CHLORPROMAZINE
     Indication: VOMITING
     Route: 041
     Dates: start: 20210218, end: 20210223
  5. AVASTIN [Suspect]
     Active Substance: BEVACIZUMAB
     Indication: PANCREATIC CARCINOMA METASTATIC
     Dosage: 25 MG / ML, CONCENTRATE FOR SOLUTION FOR INFUSION
     Route: 041
     Dates: start: 20210216, end: 20210216

REACTIONS (2)
  - Jaundice [Recovering/Resolving]
  - Mixed liver injury [Recovering/Resolving]

NARRATIVE: CASE EVENT DATE: 20210223
